FAERS Safety Report 11459089 (Version 1)
Quarter: 2015Q3

REPORT INFORMATION
  Report Type: Spontaneous
  Country: US (occurrence: US)
  Receive Date: 20150904
  Receipt Date: 20150904
  Transmission Date: 20151125
  Serious: No
  Sender: FDA-Public Use
  Company Number: US-ASTRAZENECA-2015SE82059

PATIENT
  Age: 16 Year
  Sex: Male
  Weight: 74.8 kg

DRUGS (4)
  1. PULMICORT FLEXHALER [Suspect]
     Active Substance: BUDESONIDE
     Indication: ASTHMA
     Dosage: 190 MCG TWO TIMES A DAY
     Route: 055
     Dates: start: 201508
  2. PULMICORT FLEXHALER [Suspect]
     Active Substance: BUDESONIDE
     Indication: ASTHMA
     Dosage: 90 MCG  TWO TIMES A DAY
     Route: 055
     Dates: start: 201508
  3. PULMICORT FLEXHALER [Suspect]
     Active Substance: BUDESONIDE
     Indication: ASTHMA
     Dosage: 180 MCG  TWO TIMES A DAY
     Route: 055
     Dates: start: 201508
  4. PULMICORT FLEXHALER [Suspect]
     Active Substance: BUDESONIDE
     Indication: ASTHMA
     Dosage: 160 MCG TWO TIMES A DAY
     Route: 055
     Dates: start: 201508

REACTIONS (5)
  - Speech disorder [Unknown]
  - Tremor [Unknown]
  - Slow speech [Unknown]
  - Dysphemia [Unknown]
  - Fatigue [Unknown]
